FAERS Safety Report 15877970 (Version 1)
Quarter: 2019Q1

REPORT INFORMATION
  Report Type: Other
  Country: GB (occurrence: GB)
  Receive Date: 20190128
  Receipt Date: 20190128
  Transmission Date: 20190417
  Serious: Yes (Hospitalization, Other)
  Sender: FDA-Public Use
  Company Number: GB-STRIDES ARCOLAB LIMITED-2019SP000777

PATIENT
  Sex: Male

DRUGS (1)
  1. IBUPROFEN. [Suspect]
     Active Substance: IBUPROFEN
     Indication: BODY TEMPERATURE INCREASED
     Dosage: UNK
     Route: 065

REACTIONS (1)
  - Sepsis [Recovered/Resolved]
